FAERS Safety Report 22239459 (Version 1)
Quarter: 2023Q2

REPORT INFORMATION
  Report Type: Spontaneous
  Country: US (occurrence: None)
  Receive Date: 20230419
  Receipt Date: 20230419
  Transmission Date: 20230722
  Serious: Yes (Death)
  Sender: FDA-Public Use
  Company Number: None

PATIENT
  Sex: Male

DRUGS (1)
  1. MYCOPHENOLIC ACID [Suspect]
     Active Substance: MYCOPHENOLIC ACID
     Indication: Myasthenia gravis
     Dosage: FREQUENCY : TWICE A DAY;?
     Route: 048
     Dates: start: 20220121, end: 202303

REACTIONS (1)
  - Death [None]

NARRATIVE: CASE EVENT DATE: 20230301
